FAERS Safety Report 16302445 (Version 1)
Quarter: 2019Q2

REPORT INFORMATION
  Report Type: Spontaneous
  Country: US (occurrence: US)
  Receive Date: 20190513
  Receipt Date: 20190513
  Transmission Date: 20190711
  Serious: Yes (Other)
  Sender: FDA-Public Use
  Company Number: US-STRIDES ARCOLAB LIMITED-2019SP002439

PATIENT
  Age: 33 Year
  Sex: Female

DRUGS (6)
  1. CINACALCET. [Suspect]
     Active Substance: CINACALCET
     Dosage: 60 MG, BID
     Route: 048
  2. PREDNISOLONE. [Suspect]
     Active Substance: PREDNISOLONE
     Dosage: 30 MG, QD
     Route: 048
  3. PREDNISOLONE. [Suspect]
     Active Substance: PREDNISOLONE
     Indication: HYPERCALCAEMIA
     Dosage: 20 MG, QD
     Route: 048
  4. SALINE                             /00075401/ [Concomitant]
     Active Substance: SODIUM CHLORIDE
     Indication: HYPERCALCAEMIA
     Dosage: UNK
     Route: 042
  5. CINACALCET. [Suspect]
     Active Substance: CINACALCET
     Indication: HYPERCALCAEMIA
     Dosage: 30 MG, BID
     Route: 048
  6. CALCITONIN [Suspect]
     Active Substance: CALCITONIN
     Indication: HYPERCALCAEMIA
     Dosage: 560 IU, EVERY 6 HRS
     Route: 058

REACTIONS (3)
  - Off label use [Unknown]
  - Maternal exposure during pregnancy [Unknown]
  - Therapy partial responder [Unknown]
